FAERS Safety Report 5593745-1 (Version None)
Quarter: 2007Q4

REPORT INFORMATION
  Report Type: 
  Country: None (occurrence: None)
  Receive Date: 20071218
  Receipt Date: 20070712
  Transmission Date: 20080405
  Serious: Yes (Hospitalization, Other)
  Sender: FDA-Public Use
  Company Number: 2006146683

PATIENT
  Age: 46 Year
  Sex: Male
  Weight: 63.5 kg

DRUGS (11)
  1. BEXTRA [Suspect]
     Indication: ARTHRALGIA
     Dosage: 10 MG (10 MG,1 IN 1 D)
     Dates: start: 20040404, end: 20041220
  2. CELEBREX [Suspect]
     Indication: ARTHRALGIA
     Dosage: 400 MG (200 MG,2 IN 1 D)
     Dates: start: 20010728, end: 20041020
  3. VIOXX [Suspect]
     Indication: ARTHRALGIA
     Dosage: 75 MG (1 IN 1 D),ORAL
     Route: 048
     Dates: start: 20031110, end: 20040930
  4. HYDROCODONE (HYDROCODONE) [Concomitant]
  5. ENALAPRIL MALEATE [Concomitant]
  6. ETANERCEPT (ETANERCEPT) [Concomitant]
  7. ATENOLOL [Concomitant]
  8. METHOTREXATE [Concomitant]
  9. METHYLPREDNISOLONE [Concomitant]
  10. PLAVIX [Concomitant]
  11. NITROQUICK (GLYCERYL TRINITRATE) [Concomitant]

REACTIONS (5)
  - ANXIETY [None]
  - DEPRESSION [None]
  - MYOCARDIAL INFARCTION [None]
  - PANIC ATTACK [None]
  - SCHIZOPHRENIA [None]
